FAERS Safety Report 8496726-3 (Version None)
Quarter: 2012Q3

REPORT INFORMATION
  Report Type: 
  Country: None (occurrence: None)
  Receive Date: 20120709
  Receipt Date: 20120706
  Transmission Date: 20120928
  Serious: Yes (Death, Hospitalization)
  Sender: FDA-Public Use
  Company Number: FR-B.I. PHARMACEUTICALS,INC./RIDGEFIELD-2012-FF-00877FF

PATIENT
  Age: 95 Year
  Sex: Male

DRUGS (2)
  1. ASPIRIN [Suspect]
  2. PRADAXA [Suspect]
     Indication: ATRIAL FIBRILLATION
     Dosage: 220 MG
     Route: 048

REACTIONS (4)
  - ANAEMIA [None]
  - RECTAL HAEMORRHAGE [None]
  - HAEMORRHAGE [None]
  - CARDIAC ARREST [None]
